FAERS Safety Report 10422048 (Version 1)
Quarter: 2014Q3

REPORT INFORMATION
  Report Type: Spontaneous
  Country: US (occurrence: US)
  Receive Date: 20140901
  Receipt Date: 20140901
  Transmission Date: 20150326
  Serious: No
  Sender: FDA-Public Use
  Company Number: US-SA-2013SA100012

PATIENT
  Sex: Female

DRUGS (2)
  1. AVAPRO [Suspect]
     Active Substance: IRBESARTAN
     Route: 065
  2. AVAPRO [Suspect]
     Active Substance: IRBESARTAN
     Route: 065

REACTIONS (1)
  - Heart rate increased [Unknown]
